FAERS Safety Report 4613876-X (Version None)
Quarter: 2005Q1

REPORT INFORMATION
  Report Type: 
  Country: None (occurrence: None)
  Receive Date: 20050316
  Receipt Date: 20050302
  Transmission Date: 20050727
  Serious: No
  Sender: FDA-Public Use
  Company Number: 10457

PATIENT

DRUGS (1)
  1. CYTARABINE [Suspect]
     Indication: ACUTE MYELOID LEUKAEMIA

REACTIONS (1)
  - BALANCE DISORDER [None]
